FAERS Safety Report 4942873-X (Version None)
Quarter: 2006Q1

REPORT INFORMATION
  Report Type: 
  Country: None (occurrence: None)
  Receive Date: 20060314
  Receipt Date: 20060307
  Transmission Date: 20060701
  Serious: Yes (Other)
  Sender: FDA-Public Use
  Company Number: US-BRISTOL-MYERS SQUIBB COMPANY-13306329

PATIENT

DRUGS (1)
  1. TEQUIN [Suspect]

REACTIONS (1)
  - HYPOGLYCAEMIA [None]
